FAERS Safety Report 23158314 (Version 1)
Quarter: 2023Q4

REPORT INFORMATION
  Report Type: Spontaneous
  Country: US (occurrence: US)
  Receive Date: 20231108
  Receipt Date: 20231108
  Transmission Date: 20240110
  Serious: Yes (Other)
  Sender: FDA-Public Use
  Company Number: US-EPICPHARMA-US-2023EPCLIT01651

PATIENT
  Age: 75 Year
  Sex: Male

DRUGS (1)
  1. AMIODARONE HYDROCHLORIDE [Suspect]
     Active Substance: AMIODARONE HYDROCHLORIDE
     Indication: Atrial flutter
     Route: 065

REACTIONS (4)
  - Eosinophilic pneumonia [Recovering/Resolving]
  - Pneumonitis [Recovering/Resolving]
  - Pulmonary toxicity [Recovering/Resolving]
  - Product use in unapproved indication [Unknown]
